FAERS Safety Report 17032138 (Version 4)
Quarter: 2020Q4

REPORT INFORMATION
  Report Type: Spontaneous
  Country: US (occurrence: US)
  Receive Date: 20191114
  Receipt Date: 20201203
  Transmission Date: 20210113
  Serious: Yes (Other)
  Sender: FDA-Public Use
  Company Number: US-PFIZER INC-2019243107

PATIENT
  Age: 74 Year
  Sex: Female

DRUGS (1)
  1. PRISTIQ EXTENDED-RELEASE [Suspect]
     Active Substance: DESVENLAFAXINE SUCCINATE
     Dosage: 100 G, UNK (QUANTITY FOR 90 DAYS: 90)

REACTIONS (4)
  - Self-injurious ideation [Unknown]
  - Depressed mood [Unknown]
  - Feeling abnormal [Unknown]
  - Product prescribing error [Unknown]
